FAERS Safety Report 12679333 (Version 4)
Quarter: 2017Q1

REPORT INFORMATION
  Report Type: Report from Study
  Country: US (occurrence: US)
  Receive Date: 20160824
  Receipt Date: 20170116
  Transmission Date: 20170428
  Serious: Yes (Other)
  Sender: FDA-Public Use
  Company Number: PHEH2016US020954

PATIENT
  Age: 46 Year
  Sex: Female
  Weight: 83 kg

DRUGS (1)
  1. COSENTYX [Suspect]
     Active Substance: SECUKINUMAB
     Indication: PSORIASIS
     Dosage: 300 MG, QMO
     Route: 058
     Dates: start: 20160709, end: 20170106

REACTIONS (10)
  - Injection site rash [Unknown]
  - Nasopharyngitis [Unknown]
  - Abdominal distension [Unknown]
  - Swelling face [Unknown]
  - Oral herpes [Not Recovered/Not Resolved]
  - Injection site vesicles [Recovered/Resolved]
  - Nasal congestion [Unknown]
  - Weight increased [Not Recovered/Not Resolved]
  - Local swelling [Unknown]
  - Injection site pain [Not Recovered/Not Resolved]

NARRATIVE: CASE EVENT DATE: 20160715
